FAERS Safety Report 6549818-X (Version None)
Quarter: 2010Q1

REPORT INFORMATION
  Report Type: 
  Country: None (occurrence: None)
  Receive Date: 20100125
  Receipt Date: 20100112
  Transmission Date: 20100710
  Serious: Yes (Death)
  Sender: FDA-Public Use
  Company Number: US-TYCO HEALTHCARE/MALLINCKRODT-T201000024

PATIENT
  Age: 42 Year
  Sex: Male

DRUGS (7)
  1. OXYCODONE HCL [Suspect]
     Dosage: UNK
  2. HYDROCODONE BITARTRATE [Suspect]
     Dosage: UNK
  3. OXYMORPHONE HYDROCHLORIDE [Suspect]
     Dosage: UNK
  4. DIHYDROCODEINE BITARTRATE INJ [Suspect]
     Dosage: UNK
  5. LORAZEPAM [Suspect]
     Dosage: UNK
  6. CITALOPRAM [Suspect]
     Dosage: UNK
  7. MARIJUANA [Suspect]
     Dosage: UNK

REACTIONS (2)
  - COMPLETED SUICIDE [None]
  - MULTIPLE DRUG OVERDOSE INTENTIONAL [None]
